FAERS Safety Report 26116611 (Version 1)
Quarter: 2025Q4

REPORT INFORMATION
  Report Type: Spontaneous
  Country: US (occurrence: US)
  Receive Date: 20251203
  Receipt Date: 20251203
  Transmission Date: 20260118
  Serious: Yes (Death, Hospitalization)
  Sender: MYLAN
  Company Number: US-MYLANLABS-2025M1102891

PATIENT
  Age: 43 Year
  Sex: Male

DRUGS (9)
  1. VANCOMYCIN [Suspect]
     Active Substance: VANCOMYCIN
     Indication: Pneumonitis
     Dosage: UNK
  2. METHYLPREDNISOLONE [Suspect]
     Active Substance: METHYLPREDNISOLONE
     Indication: Pneumonitis
     Dosage: 60 MILLIGRAM, BID
  3. METHYLPREDNISOLONE [Suspect]
     Active Substance: METHYLPREDNISOLONE
     Dosage: 250 MILLIGRAM, BID, A THREE-DAY TRIAL
  4. PREDNISONE [Suspect]
     Active Substance: PREDNISONE
     Indication: Acute respiratory distress syndrome
     Dosage: 50 MILLIGRAM, BID
  5. PREDNISONE [Suspect]
     Active Substance: PREDNISONE
     Indication: Pneumonitis
  6. PIPERACILLIN AND TAZOBACTAM [Suspect]
     Active Substance: PIPERACILLIN SODIUM\TAZOBACTAM SODIUM
     Indication: Pneumonitis
     Dosage: UNK
  7. INFLIXIMAB [Suspect]
     Active Substance: INFLIXIMAB
     Indication: Acute respiratory distress syndrome
     Dosage: 5 MILLIGRAM/KILOGRAM
  8. INFLIXIMAB [Suspect]
     Active Substance: INFLIXIMAB
     Indication: Pneumonitis
     Dosage: UNK, SECOND INFLIXIMAB DOSE AT DAY 14
  9. REGORAFENIB [Concomitant]
     Active Substance: REGORAFENIB
     Indication: Colorectal cancer metastatic
     Dosage: UNK

REACTIONS (1)
  - Drug ineffective [Fatal]
